FAERS Safety Report 6574371-4 (Version None)
Quarter: 2010Q1

REPORT INFORMATION
  Report Type: 
  Country: None (occurrence: None)
  Receive Date: 20100208
  Receipt Date: 20100129
  Transmission Date: 20100710
  Serious: Yes (Hospitalization, Other)
  Sender: FDA-Public Use
  Company Number: US-MERCK-1002USA00092

PATIENT
  Age: 76 Year
  Sex: Male

DRUGS (9)
  1. DECADRON [Suspect]
     Route: 048
     Dates: start: 20090325, end: 20090401
  2. DECADRON [Suspect]
     Route: 048
     Dates: start: 20090401
  3. REVLIMID [Suspect]
     Indication: MULTIPLE MYELOMA
     Route: 048
     Dates: start: 20090301, end: 20090401
  4. REVLIMID [Suspect]
     Route: 048
     Dates: start: 20090401
  5. LAMICTAL [Concomitant]
     Route: 065
  6. ARANESP [Concomitant]
     Indication: MYELODYSPLASTIC SYNDROME
     Route: 065
     Dates: start: 20081202
  7. ZOMETA [Concomitant]
     Indication: METASTASES TO BONE
     Route: 065
     Dates: start: 20090303
  8. ZOMETA [Concomitant]
     Indication: MULTIPLE MYELOMA
     Route: 065
     Dates: start: 20090303
  9. DECADRON [Concomitant]
     Route: 048

REACTIONS (4)
  - ASTHENIA [None]
  - FLUSHING [None]
  - HYPOCALCAEMIA [None]
  - PANCYTOPENIA [None]
